FAERS Safety Report 9948584 (Version 2)
Quarter: 2014Q1

REPORT INFORMATION
  Report Type: Spontaneous
  Country: JP (occurrence: JP)
  Receive Date: 20140303
  Receipt Date: 20140311
  Transmission Date: 20141002
  Serious: Yes (Other)
  Sender: FDA-Public Use
  Company Number: JP-ABBVIE-14P-087-1206125-00

PATIENT
  Age: 83 Year
  Sex: Female

DRUGS (1)
  1. SEVOFRANE [Suspect]
     Indication: PRODUCT USED FOR UNKNOWN INDICATION
     Dosage: CONCENTRATION BETWEEN 0.7 AND 0.8 %.

REACTIONS (1)
  - Status epilepticus [Unknown]
